FAERS Safety Report 24410213 (Version 1)
Quarter: 2024Q4

REPORT INFORMATION
  Report Type: Spontaneous
  Country: GB (occurrence: GB)
  Receive Date: 20241008
  Receipt Date: 20241008
  Transmission Date: 20250115
  Serious: Yes (Other)
  Sender: AUROBINDO
  Company Number: GB-MHRA-MED-202409262016491500-JKVCH

PATIENT
  Age: 68 Year
  Sex: Female

DRUGS (2)
  1. AMOXICILLIN\CLAVULANATE POTASSIUM [Suspect]
     Active Substance: AMOXICILLIN\CLAVULANATE POTASSIUM
     Indication: Adverse drug reaction
     Dosage: 625 MILLIGRAM, 3 TIMES A DAY (625MG TDS)
     Route: 065
     Dates: start: 20240923, end: 20240925
  2. CALCIUM CARBONATE\CHOLECALCIFEROL [Concomitant]
     Active Substance: CALCIUM CARBONATE\CHOLECALCIFEROL
     Indication: Product used for unknown indication
     Dosage: UNK
     Route: 065

REACTIONS (1)
  - Liver function test abnormal [Unknown]

NARRATIVE: CASE EVENT DATE: 20240923
